FAERS Safety Report 5749160-0 (Version None)
Quarter: 2008Q2

REPORT INFORMATION
  Report Type: 
  Country: None (occurrence: None)
  Receive Date: 20080527
  Receipt Date: 20080519
  Transmission Date: 20081010
  Serious: Yes (Life-Threatening, Hospitalization)
  Sender: FDA-Public Use
  Company Number: US-NOVOPROD-275391

PATIENT
  Age: 67 Year
  Sex: Male

DRUGS (1)
  1. NORDITROPIN [Suspect]
     Indication: GROWTH HORMONE DEFICIENCY
     Dosage: UNKNOWN
     Route: 058

REACTIONS (1)
  - ANAPHYLACTIC SHOCK [None]
